FAERS Safety Report 10539102 (Version 2)
Quarter: 2014Q4

REPORT INFORMATION
  Report Type: Spontaneous
  Country: FR (occurrence: FR)
  Receive Date: 20141023
  Receipt Date: 20141030
  Transmission Date: 20150529
  Serious: Yes (Disabling, Other)
  Sender: FDA-Public Use
  Company Number: FR-DSJP-DSE-2014-125811

PATIENT

DRUGS (1)
  1. OLMETEC 40 MG [Suspect]
     Active Substance: OLMESARTAN MEDOXOMIL
     Indication: HYPERTENSION
     Dosage: 40 MG, QD
     Route: 048
     Dates: start: 201401, end: 20140527

REACTIONS (8)
  - Frequent bowel movements [Recovered/Resolved]
  - Colitis [Recovered/Resolved]
  - General physical health deterioration [Not Recovered/Not Resolved]
  - Alopecia areata [Not Recovered/Not Resolved]
  - Gastritis [Recovered/Resolved]
  - Oral candidiasis [Recovered/Resolved]
  - Vomiting [Recovered/Resolved]
  - Abdominal distension [Recovered/Resolved]

NARRATIVE: CASE EVENT DATE: 201404
